FAERS Safety Report 4619003-7 (Version None)
Quarter: 2005Q1

REPORT INFORMATION
  Report Type: 
  Country: None (occurrence: None)
  Receive Date: 20050325
  Receipt Date: 20050315
  Transmission Date: 20050727
  Serious: Yes (Death, Hospitalization)
  Sender: FDA-Public Use
  Company Number: SE-JNJFOC-20050303811

PATIENT
  Sex: Male

DRUGS (7)
  1. REOPRO [Suspect]
     Indication: MYOCARDIAL INFARCTION
     Route: 042
  2. ENOXAPARIN SODIUM [Suspect]
     Indication: ACUTE MYOCARDIAL INFARCTION
     Route: 058
  3. ASPIRIN [Suspect]
     Indication: ACUTE MYOCARDIAL INFARCTION
     Route: 049
  4. PLAVIX [Concomitant]
     Route: 049
  5. SELOKEN [Concomitant]
  6. ESIDRIX [Concomitant]
  7. NORFLOXACIN [Concomitant]

REACTIONS (12)
  - COMPUTERISED TOMOGRAM ABNORMAL [None]
  - CONFUSIONAL STATE [None]
  - CULTURE URINE POSITIVE [None]
  - DRUG INTERACTION [None]
  - HEPATIC CONGESTION [None]
  - MYOCARDIAL INFARCTION [None]
  - PERICARDITIS [None]
  - PULMONARY EMBOLISM [None]
  - PULMONARY HAEMORRHAGE [None]
  - PULMONARY OEDEMA [None]
  - SHOCK [None]
  - SPLEEN CONGESTION [None]
